FAERS Safety Report 22108623 (Version 1)
Quarter: 2023Q1

REPORT INFORMATION
  Report Type: Spontaneous
  Country: CA (occurrence: CA)
  Receive Date: 20230317
  Receipt Date: 20230317
  Transmission Date: 20230417
  Serious: Yes (Hospitalization)
  Sender: FDA-Public Use
  Company Number: CA-BAYER-2023A034669

PATIENT
  Age: 27 Year
  Sex: Female

DRUGS (9)
  1. YAZ [Suspect]
     Active Substance: DROSPIRENONE\ETHINYL ESTRADIOL
     Indication: Oral contraception
     Dosage: 1 DF, QD
     Route: 048
     Dates: start: 20100609, end: 20120829
  2. YAZ [Suspect]
     Active Substance: DROSPIRENONE\ETHINYL ESTRADIOL
     Indication: Oral contraception
     Dosage: 1 DF, QD
     Route: 048
     Dates: start: 20120929, end: 201302
  3. PREDNISONE [Concomitant]
     Active Substance: PREDNISONE
     Indication: Immune thrombocytopenia
     Dosage: 60 MG, QD
     Route: 048
     Dates: start: 20121119
  4. PREDNISONE [Concomitant]
     Active Substance: PREDNISONE
     Indication: Immune thrombocytopenia
     Dosage: 60 MG, BID
     Route: 048
     Dates: start: 20121121
  5. PREDNISONE [Concomitant]
     Active Substance: PREDNISONE
     Indication: Immune thrombocytopenia
     Dosage: DAILY DOSE 50 MG
     Route: 048
     Dates: start: 20130202
  6. ZOFRAN [Concomitant]
     Active Substance: ONDANSETRON HYDROCHLORIDE
     Indication: Immune thrombocytopenia
  7. GRAVOL [Concomitant]
     Active Substance: DIMENHYDRINATE
     Indication: Immune thrombocytopenia
  8. MORPHINE [Concomitant]
     Active Substance: MORPHINE
     Indication: Immune thrombocytopenia
  9. CELEBREX [Concomitant]
     Active Substance: CELECOXIB
     Dosage: 200 MG, PRN
     Dates: start: 20130126

REACTIONS (3)
  - Cerebral venous thrombosis [Recovering/Resolving]
  - Cerebrovascular accident [Recovering/Resolving]
  - Seizure [Recovering/Resolving]

NARRATIVE: CASE EVENT DATE: 20130126
